FAERS Safety Report 15668771 (Version 6)
Quarter: 2019Q4

REPORT INFORMATION
  Report Type: Report from Study
  Country: US (occurrence: US)
  Receive Date: 20181129
  Receipt Date: 20191111
  Transmission Date: 20200122
  Serious: Yes (Death, Hospitalization, Other)
  Sender: FDA-Public Use
  Company Number: US-ASTELLAS-2018US050461

PATIENT
  Age: 84 Year
  Sex: Male

DRUGS (1)
  1. ENZALUTAMIDE [Suspect]
     Active Substance: ENZALUTAMIDE
     Indication: PROSTATE CANCER
     Route: 048
     Dates: start: 20180202

REACTIONS (10)
  - Renal disorder [Unknown]
  - Malignant neoplasm progression [Unknown]
  - Feeling abnormal [Unknown]
  - Death [Fatal]
  - Hernia pain [Unknown]
  - Musculoskeletal stiffness [Unknown]
  - Abdominal hernia [Unknown]
  - Visual impairment [Unknown]
  - Cancer pain [Unknown]
  - Eye pain [Unknown]

NARRATIVE: CASE EVENT DATE: 20181121
